FAERS Safety Report 11605356 (Version 5)
Quarter: 2018Q4

REPORT INFORMATION
  Report Type: Report from Study
  Country: ZA (occurrence: ZA)
  Receive Date: 20151007
  Receipt Date: 20181016
  Transmission Date: 20190204
  Serious: Yes (Life-Threatening, Hospitalization, Other)
  Sender: FDA-Public Use
  Company Number: PHHY2015ZA118332

PATIENT
  Age: 84 Year
  Sex: Female

DRUGS (10)
  1. ACLASTA [Suspect]
     Active Substance: ZOLEDRONIC ACID
     Dosage: 1 DF, (5MG/100ML) UNK
     Route: 041
     Dates: start: 201410
  2. ACLASTA [Suspect]
     Active Substance: ZOLEDRONIC ACID
     Dosage: 1 DF, (5MG/100ML) UNK
     Route: 041
     Dates: start: 2009
  3. ACLASTA [Suspect]
     Active Substance: ZOLEDRONIC ACID
     Dosage: 1 DF, (5MG/100ML) UNK
     Route: 041
     Dates: start: 2010
  4. ACLASTA [Suspect]
     Active Substance: ZOLEDRONIC ACID
     Dosage: 1 DF, (5MG/100ML) UNK
     Route: 041
     Dates: start: 2015
  5. WARFARIN [Concomitant]
     Active Substance: WARFARIN
     Indication: PRODUCT USED FOR UNKNOWN INDICATION
     Dosage: UNK
     Route: 065
  6. ACLASTA [Suspect]
     Active Substance: ZOLEDRONIC ACID
     Dosage: 1 DF, (5MG/100ML) UNK
     Route: 041
     Dates: start: 201610
  7. ACLASTA [Suspect]
     Active Substance: ZOLEDRONIC ACID
     Indication: OSTEOPOROSIS
     Dosage: 1 DF, (5MG/100ML) UNK
     Route: 065
     Dates: start: 200810
  8. ACLASTA [Suspect]
     Active Substance: ZOLEDRONIC ACID
     Dosage: 1 DF, (5MG/100ML) UNK
     Route: 041
     Dates: start: 201210
  9. ACLASTA [Suspect]
     Active Substance: ZOLEDRONIC ACID
     Dosage: 1 DF, (5MG/100ML) UNK
     Route: 041
     Dates: start: 201110
  10. ACLASTA [Suspect]
     Active Substance: ZOLEDRONIC ACID
     Dosage: 1 DF, (5MG/100ML) UNK
     Route: 041
     Dates: start: 201310

REACTIONS (24)
  - Nosocomial infection [Unknown]
  - Cardiac failure [Unknown]
  - Infarction [Recovering/Resolving]
  - Gait disturbance [Unknown]
  - Asthenia [Unknown]
  - Tendon discomfort [Recovering/Resolving]
  - Fall [Recovering/Resolving]
  - Cerebral haemorrhage [Unknown]
  - Epilepsy [Unknown]
  - Pulmonary oedema [Unknown]
  - Femur fracture [Recovering/Resolving]
  - Malaise [Unknown]
  - Pneumothorax [Unknown]
  - Concussion [Unknown]
  - Arterial occlusive disease [Recovering/Resolving]
  - Coma [Unknown]
  - Ulna fracture [Recovering/Resolving]
  - Cardiac valve disease [Recovering/Resolving]
  - Enterobacter pneumonia [Unknown]
  - Radius fracture [Recovering/Resolving]
  - Pulmonary embolism [Unknown]
  - Pleural effusion [Unknown]
  - Wrist fracture [Recovering/Resolving]
  - Cerebral haematoma [Unknown]

NARRATIVE: CASE EVENT DATE: 201401
